FAERS Safety Report 19385202 (Version 2)
Quarter: 2021Q2

REPORT INFORMATION
  Report Type: Report from Study
  Country: US (occurrence: US)
  Receive Date: 20210608
  Receipt Date: 20210621
  Transmission Date: 20210717
  Serious: No
  Sender: FDA-Public Use
  Company Number: NVSC2021US127247

PATIENT
  Age: 59 Year
  Sex: Female

DRUGS (1)
  1. MAYZENT [Suspect]
     Active Substance: SIPONIMOD
     Indication: MULTIPLE SCLEROSIS
     Dosage: 2 MG, QD
     Route: 048
     Dates: start: 20210528

REACTIONS (12)
  - Headache [Unknown]
  - Photophobia [Unknown]
  - Swelling face [Unknown]
  - Vision blurred [Unknown]
  - Peripheral swelling [Unknown]
  - Chest discomfort [Unknown]
  - Abnormal dreams [Not Recovered/Not Resolved]
  - Pain in extremity [Unknown]
  - Abdominal distension [Unknown]
  - Visual impairment [Unknown]
  - Band sensation [Unknown]
  - Eye pain [Unknown]

NARRATIVE: CASE EVENT DATE: 202105
